APPROVED DRUG PRODUCT: REGLAN
Active Ingredient: METOCLOPRAMIDE HYDROCHLORIDE
Strength: EQ 5MG BASE/5ML **Federal Register determination that product was not discontinued or withdrawn for safety or effectiveness reasons**
Dosage Form/Route: SOLUTION;ORAL
Application: N018821 | Product #001
Applicant: AH ROBINS CO
Approved: Mar 25, 1983 | RLD: Yes | RS: No | Type: DISCN